FAERS Safety Report 17834051 (Version 1)
Quarter: 2020Q2

REPORT INFORMATION
  Report Type: Spontaneous
  Country: PL (occurrence: PL)
  Receive Date: 20200528
  Receipt Date: 20200528
  Transmission Date: 20200714
  Serious: Yes (Other)
  Sender: FDA-Public Use
  Company Number: NVSC2020PL055731

PATIENT
  Age: 7 Year
  Sex: Female

DRUGS (4)
  1. METHOTREXATE. [Suspect]
     Active Substance: METHOTREXATE
     Indication: NON-HODGKIN^S LYMPHOMA
     Dosage: UNK (ON THE FIRST AND SEVENTH DAY OF TREATMENT)
     Route: 037
  2. METHOTREXATE. [Suspect]
     Active Substance: METHOTREXATE
     Dosage: UNK UNK, CYCLIC (NEXT - FOUR CYCLES   )
     Route: 065
  3. PREDNISONE. [Suspect]
     Active Substance: PREDNISONE
     Indication: NON-HODGKIN^S LYMPHOMA
     Dosage: UNK THEN PREDNISONE, FOLLOWED BY MERCAPTOPURINE [6-MERCAPTOPURINE ]
     Route: 065
  4. MERCAPTOPURINE. [Suspect]
     Active Substance: MERCAPTOPURINE
     Indication: NON-HODGKIN^S LYMPHOMA
     Dosage: DURING MAINTENANCE THERAPY - ONCE A DAY
     Route: 065

REACTIONS (5)
  - Immobile [Unknown]
  - Toe walking [Recovered/Resolved]
  - Arthropathy [Recovered/Resolved]
  - Anxiety [Unknown]
  - Muscular weakness [Unknown]
